FAERS Safety Report 5059877-1 (Version None)
Quarter: 2006Q3

REPORT INFORMATION
  Report Type: 
  Country: None (occurrence: None)
  Receive Date: 20060718
  Receipt Date: 20060630
  Transmission Date: 20061208
  Serious: Yes (Hospitalization)
  Sender: FDA-Public Use
  Company Number: 2006RR-02886

PATIENT
  Age: 40 Year
  Sex: Female

DRUGS (1)
  1. SIMVASTATIN FAMILY (SIMVASTATIN) TABLET [Suspect]
     Indication: HYPERCHOLESTEROLAEMIA
     Dosage: 80 MG QD ORAL
     Route: 048

REACTIONS (1)
  - RHABDOMYOLYSIS [None]
